FAERS Safety Report 24062272 (Version 1)
Quarter: 2024Q3

REPORT INFORMATION
  Report Type: Spontaneous
  Country: US (occurrence: US)
  Receive Date: 20240708
  Receipt Date: 20240708
  Transmission Date: 20241017
  Serious: Yes (Other)
  Sender: FOUNDATION CONSUMER HEALTHCARE
  Company Number: US-FOUNDATIONCONSUMERHC-2024-US-035005

PATIENT
  Age: 18 Year
  Sex: Female
  Weight: 72.58 kg

DRUGS (1)
  1. PLAN B ONE-STEP [Suspect]
     Active Substance: LEVONORGESTREL
     Indication: Post coital contraception
     Dosage: 1.5 MG TABLET X1
     Route: 048
     Dates: start: 201902, end: 201902

REACTIONS (1)
  - Ovarian cyst ruptured [Unknown]

NARRATIVE: CASE EVENT DATE: 20190301
